FAERS Safety Report 6563388-1 (Version None)
Quarter: 2010Q1

REPORT INFORMATION
  Report Type: 
  Country: None (occurrence: None)
  Receive Date: 20100130
  Receipt Date: 20091210
  Transmission Date: 20100710
  Serious: No
  Sender: FDA-Public Use
  Company Number: US-ABBOTT-09P-163-0614815-00

PATIENT
  Sex: Female

DRUGS (5)
  1. HUMIRA [Suspect]
     Indication: PSORIASIS
     Dosage: 80 MG LOADING DOSE
     Route: 058
     Dates: start: 20091201, end: 20091201
  2. HUMIRA [Suspect]
     Route: 058
     Dates: start: 20091208
  3. METHOTREXATE [Concomitant]
     Indication: PSORIASIS
  4. STARLIX [Concomitant]
     Indication: TYPE 2 DIABETES MELLITUS
     Dosage: DAILY
  5. AVANDIA [Concomitant]
     Indication: TYPE 2 DIABETES MELLITUS
     Dosage: DAILY

REACTIONS (1)
  - NAUSEA [None]
